FAERS Safety Report 8629311 (Version 2)
Quarter: 2012Q4

REPORT INFORMATION
  Report Type: 
  Country: TR (occurrence: TR)
  Receive Date: 20120622
  Receipt Date: 20121004
  Transmission Date: 20130627
  Serious: Yes (Other)
  Sender: FDA-Public Use
  Company Number: TR-AMGEN-TURSP2012037815

PATIENT
  Age: 38 Year
  Sex: Female

DRUGS (2)
  1. ENBREL [Suspect]
     Indication: ANKYLOSING SPONDYLITIS
     Dosage: 50 mg, weekly
     Route: 058
     Dates: start: 20111215, end: 20120514
  2. ENBREL [Suspect]
     Dosage: UNK
     Dates: start: 20120905

REACTIONS (3)
  - Abortion spontaneous [Not Recovered/Not Resolved]
  - Haemorrhage [Recovered/Resolved]
  - Injection site anaesthesia [Not Recovered/Not Resolved]
